FAERS Safety Report 9748013 (Version 3)
Quarter: 2013Q4

REPORT INFORMATION
  Report Type: Spontaneous
  Country: US (occurrence: US)
  Receive Date: 20131212
  Receipt Date: 20131212
  Transmission Date: 20140711
  Serious: Yes (Other)
  Sender: FDA-Public Use
  Company Number: US-TEVA-386832USA

PATIENT
  Age: 28 Year
  Sex: Female
  Weight: 69.46 kg

DRUGS (1)
  1. PARAGARD 380A [Suspect]
     Indication: CONTRACEPTION
     Route: 015
     Dates: start: 20101007, end: 20130211

REACTIONS (5)
  - Abortion missed [Unknown]
  - Drug ineffective [Unknown]
  - Uterine haemorrhage [Recovered/Resolved]
  - Device expulsion [Recovered/Resolved]
  - Abdominal pain [Recovered/Resolved]
